FAERS Safety Report 9371430 (Version 1)
Quarter: 2013Q2

REPORT INFORMATION
  Report Type: Spontaneous
  Country: US (occurrence: None)
  Receive Date: 20130626
  Receipt Date: 20130626
  Transmission Date: 20140414
  Serious: Yes (Other)
  Sender: FDA-Public Use
  Company Number: None

PATIENT
  Age: 48 Year
  Sex: Male
  Weight: 77.11 kg

DRUGS (5)
  1. BENAZEPRIL [Suspect]
     Indication: HYPERTENSION
     Route: 048
     Dates: start: 20130416
  2. CARVEDILOL [Concomitant]
  3. KLOR-CON [Concomitant]
  4. LASIX [Concomitant]
  5. PRAVASTATIN [Concomitant]

REACTIONS (5)
  - Hypotension [None]
  - Fall [None]
  - Dizziness [None]
  - Syncope [None]
  - Nausea [None]
